FAERS Safety Report 21611373 (Version 2)
Quarter: 2022Q4

REPORT INFORMATION
  Report Type: Spontaneous
  Country: US (occurrence: US)
  Receive Date: 20221117
  Receipt Date: 20221209
  Transmission Date: 20230112
  Serious: Yes (Life-Threatening, Hospitalization)
  Sender: FDA-Public Use
  Company Number: US-TEVA-2022-US-2825324

PATIENT
  Age: 30 Year
  Sex: Male
  Weight: 75 kg

DRUGS (17)
  1. NOREPINEPHRINE [Suspect]
     Active Substance: NOREPINEPHRINE
     Indication: Hypotension
     Dosage: ADDITIONAL INFO: ROUTE: {INFUSION}
     Route: 050
  2. NOREPINEPHRINE [Suspect]
     Active Substance: NOREPINEPHRINE
     Indication: Hypotension
     Dosage: 0.32 MCG/KG
     Route: 065
  3. BIOTIN [Suspect]
     Active Substance: BIOTIN
     Indication: Neurodegenerative disorder
     Route: 065
  4. RIBOFLAVIN [Suspect]
     Active Substance: RIBOFLAVIN
     Indication: Neurodegenerative disorder
     Route: 065
  5. DIETARY SUPPLEMENT\UBIDECARENONE [Suspect]
     Active Substance: DIETARY SUPPLEMENT\UBIDECARENONE
     Indication: Neurodegenerative disorder
     Route: 065
  6. VITAMIN E [Suspect]
     Active Substance: .ALPHA.-TOCOPHEROL
     Indication: Neurodegenerative disorder
     Route: 065
  7. ALPHA LIPOIC ACID [Suspect]
     Active Substance: .ALPHA.-LIPOIC ACID
     Indication: Neurodegenerative disorder
     Route: 065
  8. VASOPRESSIN [Suspect]
     Active Substance: VASOPRESSIN
     Indication: Hypotension
     Dosage: ADDITIONAL INFO: ROUTE: {INFUSION}
     Route: 050
  9. VASOPRESSIN [Suspect]
     Active Substance: VASOPRESSIN
     Dosage: 0.04 U/MIN
     Route: 065
  10. ELECTROLYTES NOS [Suspect]
     Active Substance: ELECTROLYTES NOS
     Indication: Fluid replacement
     Route: 042
  11. ELECTROLYTES NOS [Suspect]
     Active Substance: ELECTROLYTES NOS
     Dosage: 5 LITERS
     Route: 042
  12. ALBUMIN HUMAN [Suspect]
     Active Substance: ALBUMIN HUMAN
     Indication: Resuscitation
     Route: 065
  13. TROMETHAMINE [Suspect]
     Active Substance: TROMETHAMINE
     Indication: Lactic acidosis
     Dosage: ADDITIONAL INFO: ROUTE: {INFUSION}
     Route: 050
  14. DEXTROSE [Suspect]
     Active Substance: DEXTROSE
     Indication: Fluid replacement
     Route: 042
  15. DEXTROSE [Suspect]
     Active Substance: DEXTROSE
     Dosage: 6 MG/KG AT 1 MIN
     Route: 041
  16. EPINEPHRINE [Concomitant]
     Active Substance: EPINEPHRINE
     Indication: Positive cardiac inotropic effect
     Route: 050
  17. INSULIN NOS [Concomitant]
     Active Substance: INSULIN NOS
     Indication: Lactic acidosis
     Route: 065

REACTIONS (5)
  - Lactic acidosis [Recovered/Resolved]
  - Respiratory failure [Recovered/Resolved]
  - Hypotension [Recovered/Resolved]
  - Hypoxia [Recovered/Resolved]
  - Drug ineffective [Unknown]
